FAERS Safety Report 23956358 (Version 1)
Quarter: 2024Q2

REPORT INFORMATION
  Report Type: Spontaneous
  Country: US (occurrence: US)
  Receive Date: 20240610
  Receipt Date: 20240610
  Transmission Date: 20240716
  Serious: Yes (Other)
  Sender: FDA-Public Use
  Company Number: US-AMGEN-USASP2024110635

PATIENT
  Age: 60 Year
  Sex: Female

DRUGS (2)
  1. KYPROLIS [Suspect]
     Active Substance: CARFILZOMIB
     Indication: Amyloidosis
     Dosage: 20 MILLIGRAM/SQ. METER, Q2WK (2X/WEEK, 3 WEEK OF 4)
     Route: 065
     Dates: start: 20240603
  2. KYPROLIS [Suspect]
     Active Substance: CARFILZOMIB
     Indication: Off label use

REACTIONS (2)
  - Haemodialysis [Unknown]
  - Off label use [Unknown]

NARRATIVE: CASE EVENT DATE: 20240603
